FAERS Safety Report 7287184-5 (Version None)
Quarter: 2011Q1

REPORT INFORMATION
  Report Type: 
  Country: None (occurrence: None)
  Receive Date: 20110211
  Receipt Date: 20110131
  Transmission Date: 20110831
  Serious: Yes (Death, Life-Threatening, Other)
  Sender: FDA-Public Use
  Company Number: JP-ROCHE-723814

PATIENT
  Sex: Male
  Weight: 47 kg

DRUGS (11)
  1. AVASTIN [Suspect]
     Indication: RECTAL CANCER RECURRENT
     Route: 041
     Dates: start: 20090422, end: 20100622
  2. 5-FU [Concomitant]
     Route: 041
     Dates: start: 20100422, end: 20100623
  3. GRANISETRON HYDROCHLORIDE [Concomitant]
     Dosage: DOSE FORM: INTRAVENOUS (NOT OTHERWISE SPECIFIED)
     Route: 042
     Dates: start: 20100422, end: 20100622
  4. HALCION [Concomitant]
     Route: 048
     Dates: start: 20051109, end: 20100806
  5. MUCOSTA [Concomitant]
     Route: 048
     Dates: start: 20100612, end: 20100806
  6. OLMETEC [Concomitant]
     Route: 048
     Dates: start: 20090804, end: 20100806
  7. LEVOFOLINATE [Concomitant]
     Route: 041
     Dates: start: 20100422, end: 20100622
  8. ELPLAT [Concomitant]
     Route: 041
     Dates: start: 20100422, end: 20100622
  9. AVASTIN [Suspect]
     Dosage: DOSAGE WAS UNCERTAIN.
     Route: 041
     Dates: start: 20100624
  10. DECADRON [Concomitant]
     Route: 042
     Dates: start: 20100422, end: 20100622
  11. ELIETEN [Concomitant]
     Dosage: DOSE FORM: INTRAVENOUS (NOT OTHERWISE SPECIFIED)
     Route: 042
     Dates: start: 20100422, end: 20100622

REACTIONS (9)
  - SHOCK [None]
  - ILEAL PERFORATION [None]
  - ILEAL ULCER [None]
  - WOUND INFECTION [None]
  - PAIN [None]
  - ILEUS [None]
  - DISEASE PROGRESSION [None]
  - PERITONITIS [None]
  - CONSTIPATION [None]
